FAERS Safety Report 6696914-2 (Version None)
Quarter: 2010Q2

REPORT INFORMATION
  Report Type: 
  Country: None (occurrence: None)
  Receive Date: 20100426
  Receipt Date: 20100414
  Transmission Date: 20101027
  Serious: Yes (Hospitalization)
  Sender: FDA-Public Use
  Company Number: PHHY2010FR24046

PATIENT
  Sex: Female
  Weight: 42 kg

DRUGS (8)
  1. COTAREG [Suspect]
     Indication: HYPERTENSION
     Dosage: 1 DF, QD
     Route: 048
     Dates: start: 20100316, end: 20100325
  2. DESMOPRESSIN ACETATE [Suspect]
     Indication: NOCTURIA
     Dosage: 60 UG, QD
     Dates: start: 20090302, end: 20100324
  3. KARDEGIC [Concomitant]
     Dosage: 160 MG, QD
  4. SIMVASTATIN [Concomitant]
     Dosage: 20 MG, QD
  5. NOCTRAN [Concomitant]
     Dosage: 5 MG DAILY
  6. CODOLIPRANE [Concomitant]
     Dosage: 1 DF, QD
  7. SERESTA [Concomitant]
  8. CALCIPRAT [Concomitant]

REACTIONS (11)
  - BLOOD OSMOLARITY DECREASED [None]
  - BLOOD PRESSURE FLUCTUATION [None]
  - C-REACTIVE PROTEIN INCREASED [None]
  - CONFUSIONAL STATE [None]
  - FALL [None]
  - HAEMATOMA [None]
  - HYPOKALAEMIA [None]
  - HYPONATRAEMIA [None]
  - MUSCULOSKELETAL PAIN [None]
  - ORTHOSTATIC HYPOTENSION [None]
  - SCAPULA FRACTURE [None]
